FAERS Safety Report 11640532 (Version 7)
Quarter: 2019Q3

REPORT INFORMATION
  Report Type: Report from Study
  Country: FR (occurrence: FR)
  Receive Date: 20151019
  Receipt Date: 20190808
  Transmission Date: 20191004
  Serious: Yes (Death, Hospitalization)
  Sender: FDA-Public Use
  Company Number: PHHY2015FR134242

PATIENT
  Age: 87 Year
  Sex: Female

DRUGS (2)
  1. AFINITOR [Suspect]
     Active Substance: EVEROLIMUS
     Indication: BREAST CANCER
     Dosage: 5 MG, QD
     Route: 048
     Dates: start: 20150529, end: 20150730
  2. EXEMESTANE. [Concomitant]
     Active Substance: EXEMESTANE
     Indication: BREAST CANCER
     Dosage: 25 MG, QD
     Route: 065
     Dates: start: 20150529

REACTIONS (10)
  - Malnutrition [Unknown]
  - Mucosal inflammation [Fatal]
  - Pain in extremity [Unknown]
  - General physical health deterioration [Fatal]
  - Eschar [Unknown]
  - Disorientation [Fatal]
  - Skin lesion [Unknown]
  - Stomatitis [Not Recovered/Not Resolved]
  - Hypophagia [Unknown]
  - Anxiety [Unknown]

NARRATIVE: CASE EVENT DATE: 20150730
